FAERS Safety Report 7809938-6 (Version None)
Quarter: 2011Q4

REPORT INFORMATION
  Report Type: 
  Country: None (occurrence: None)
  Receive Date: 20111012
  Receipt Date: 20111010
  Transmission Date: 20120403
  Serious: No
  Sender: FDA-Public Use
  Company Number: US-PFIZER INC-2011241619

PATIENT
  Sex: Female
  Weight: 50.7 kg

DRUGS (3)
  1. IBUPROFEN (ADVIL) [Suspect]
     Indication: PAIN IN EXTREMITY
  2. ZEGERID [Concomitant]
     Indication: GASTRIC DISORDER
     Dosage: UNK
  3. IBUPROFEN (ADVIL) [Suspect]
     Indication: BACK PAIN
     Dosage: 200 MG, 3X/DAY
     Route: 048
     Dates: start: 20110901

REACTIONS (2)
  - GAIT DISTURBANCE [None]
  - DRUG EFFECT DECREASED [None]
